FAERS Safety Report 6905151-5 (Version None)
Quarter: 2010Q3

REPORT INFORMATION
  Report Type: 
  Country: None (occurrence: None)
  Receive Date: 20100804
  Receipt Date: 20100505
  Transmission Date: 20110219
  Serious: No
  Sender: FDA-Public Use
  Company Number: US-PFIZER INC-2009212405

PATIENT
  Sex: Female

DRUGS (1)
  1. LYRICA [Suspect]
     Indication: PERIODIC LIMB MOVEMENT DISORDER
     Dosage: UNK

REACTIONS (2)
  - SLEEP APNOEA SYNDROME [None]
  - SLEEP DISORDER [None]
